FAERS Safety Report 5753057-X (Version None)
Quarter: 2008Q2

REPORT INFORMATION
  Report Type: 
  Country: None (occurrence: None)
  Receive Date: 20080527
  Receipt Date: 20080516
  Transmission Date: 20081010
  Serious: Yes (Other)
  Sender: FDA-Public Use
  Company Number: 2008JP001992

PATIENT
  Age: 49 Year
  Sex: Male

DRUGS (6)
  1. PROGRAF [Suspect]
     Indication: MYASTHENIA GRAVIS
     Dosage: 3 MG, UID/QD, ORAL
     Route: 048
     Dates: start: 20051021, end: 20080327
  2. PROGRAF [Suspect]
     Indication: MYASTHENIA GRAVIS
     Dosage: 3 MG, UID/QD, ORAL
     Route: 048
     Dates: start: 20080408, end: 20080410
  3. FUNGIZONE [Suspect]
     Indication: ORAL CANDIDIASIS
     Dosage: 200 MG, UID/QD, ORAL
     Route: 048
     Dates: start: 20080328, end: 20080407
  4. PREDNISOLONE [Concomitant]
  5. BONALON (ALENDRONIC ACID) [Concomitant]
  6. FAMOTIDINE [Concomitant]

REACTIONS (4)
  - ORAL CANDIDIASIS [None]
  - PNEUMONIA ASPIRATION [None]
  - RHABDOMYOLYSIS [None]
  - SENSATION OF HEAVINESS [None]
